FAERS Safety Report 13451733 (Version 1)
Quarter: 2017Q2

REPORT INFORMATION
  Report Type: Spontaneous
  Country: US (occurrence: US)
  Receive Date: 20170418
  Receipt Date: 20170418
  Transmission Date: 20170830
  Serious: No
  Sender: FDA-Public Use
  Company Number: US-PFIZER INC-2017130280

PATIENT
  Sex: Male

DRUGS (2)
  1. METHOTREXATE SODIUM. [Interacting]
     Active Substance: METHOTREXATE SODIUM
     Dosage: UNK
  2. THERMACARE HEATWRAPS [Suspect]
     Active Substance: ACTIVATED CHARCOAL\IRON\SODIUM
     Dosage: UNK

REACTIONS (5)
  - Device interaction [Unknown]
  - Swelling [Recovering/Resolving]
  - Rash erythematous [Unknown]
  - Pruritus [Unknown]
  - Pain [Unknown]
